FAERS Safety Report 13130643 (Version 3)
Quarter: 2017Q1

REPORT INFORMATION
  Report Type: Spontaneous
  Country: JP (occurrence: JP)
  Receive Date: 20170119
  Receipt Date: 20170217
  Transmission Date: 20170428
  Serious: Yes (Death, Hospitalization)
  Sender: FDA-Public Use
  Company Number: JP-ELI_LILLY_AND_COMPANY-JP201701005699

PATIENT
  Age: 61 Year
  Sex: Male
  Weight: 50 kg

DRUGS (10)
  1. CYRAMZA [Suspect]
     Active Substance: RAMUCIRUMAB
     Indication: LUNG ADENOCARCINOMA RECURRENT
     Dosage: 490 MG, DAY1 PER 21 DAYS
     Route: 042
     Dates: start: 20161215, end: 20161215
  2. DOCETAXEL. [Suspect]
     Active Substance: DOCETAXEL
     Indication: LUNG ADENOCARCINOMA RECURRENT
     Dosage: 90 MG, DAY1 PER 21 DAYS
     Route: 042
     Dates: start: 20161215, end: 20161215
  3. DOCETAXEL. [Suspect]
     Active Substance: DOCETAXEL
     Dosage: 73 MG, DAY1 PER 21 DAYS
     Route: 042
     Dates: start: 20170106, end: 20170106
  4. LOXOPROFEN [Concomitant]
     Active Substance: LOXOPROFEN
     Indication: CANCER PAIN
     Dosage: UNK
     Route: 048
     Dates: start: 20150820, end: 20170111
  5. BELSOMRA [Concomitant]
     Active Substance: SUVOREXANT
     Indication: INSOMNIA
     Dosage: UNK
     Route: 048
     Dates: start: 20161214, end: 20170111
  6. NEXIUM [Concomitant]
     Active Substance: ESOMEPRAZOLE MAGNESIUM
     Indication: PROPHYLAXIS
     Dosage: UNK
     Route: 048
     Dates: start: 20150820, end: 20170111
  7. CALONAL [Concomitant]
     Active Substance: ACETAMINOPHEN
     Indication: CANCER PAIN
     Dosage: UNK
     Route: 048
     Dates: start: 20160323, end: 20170111
  8. FENTOS [Concomitant]
     Active Substance: FENTANYL
     Indication: CANCER PAIN
     Dosage: UNK
     Dates: start: 20161104, end: 20170110
  9. CYRAMZA [Suspect]
     Active Substance: RAMUCIRUMAB
     Dosage: 400 MG, DAY1 PER 21 DAYS
     Route: 042
     Dates: start: 20170106, end: 20170106
  10. AMLODIPINE [Concomitant]
     Active Substance: AMLODIPINE BESYLATE
     Indication: HYPERTENSION
     Dosage: 10 UNK, UNK
     Route: 048
     Dates: start: 20161215, end: 20170111

REACTIONS (3)
  - Febrile neutropenia [Recovered/Resolved]
  - Neutropenic infection [Unknown]
  - Lung disorder [Fatal]

NARRATIVE: CASE EVENT DATE: 20161223
